FAERS Safety Report 9695096 (Version 9)
Quarter: 2014Q1

REPORT INFORMATION
  Report Type: Report from Study
  Country: AU (occurrence: AU)
  Receive Date: 20131119
  Receipt Date: 20140203
  Transmission Date: 20141002
  Serious: Yes (Hospitalization, Other)
  Sender: FDA-Public Use
  Company Number: PHHY2013AU130340

PATIENT
  Age: 38 Year
  Sex: Male

DRUGS (4)
  1. CLOZARIL [Suspect]
     Indication: SCHIZOPHRENIA
     Dosage: 700 MG, DAILY
     Dates: start: 20130712, end: 20131108
  2. CLOZARIL [Suspect]
     Dosage: 12.5 MG, UNK
     Dates: start: 20131112, end: 20131113
  3. CLOZARIL [Suspect]
     Dosage: UNK UKN, UNK
  4. ANTIBIOTICS [Concomitant]
     Dosage: UNK UKN, UNK
     Route: 048

REACTIONS (29)
  - Syncope [Unknown]
  - Circulatory collapse [Recovered/Resolved]
  - Loss of consciousness [Recovered/Resolved]
  - Dizziness [Unknown]
  - Myocarditis [Recovering/Resolving]
  - C-reactive protein increased [Unknown]
  - Inflammation [Unknown]
  - Coronary artery disease [Unknown]
  - Influenza [Unknown]
  - Left ventricular dysfunction [Unknown]
  - Ejection fraction decreased [Unknown]
  - Ventricular hypokinesia [Unknown]
  - Staphylococcal sepsis [Recovered/Resolved]
  - Infection [Unknown]
  - Pyrexia [Unknown]
  - Mental impairment [Unknown]
  - Arrhythmia [Unknown]
  - Cardiomyopathy [Unknown]
  - Protein total decreased [Unknown]
  - Bicuspid aortic valve [Unknown]
  - Faecal incontinence [Unknown]
  - Antipsychotic drug level decreased [Recovered/Resolved]
  - Blood alkaline phosphatase increased [Recovered/Resolved]
  - Blood pressure systolic increased [Unknown]
  - Urinary incontinence [Unknown]
  - Blood cholesterol increased [Recovered/Resolved]
  - Lymphocyte count decreased [Unknown]
  - Blood glucose increased [Recovered/Resolved]
  - White blood cell count decreased [Unknown]
